FAERS Safety Report 24366610 (Version 2)
Quarter: 2025Q1

REPORT INFORMATION
  Report Type: Spontaneous
  Country: US (occurrence: US)
  Receive Date: 20240926
  Receipt Date: 20250121
  Transmission Date: 20250409
  Serious: Yes (Hospitalization, Other)
  Sender: MYLAN
  Company Number: US-MYLANLABS-2024M1084387

PATIENT
  Age: 68 Year
  Sex: Male
  Weight: 106.59 kg

DRUGS (16)
  1. VALSARTAN [Suspect]
     Active Substance: VALSARTAN
     Indication: Hypertension
     Route: 065
     Dates: start: 2014
  2. GLIPIZIDE [Concomitant]
     Active Substance: GLIPIZIDE
     Indication: Diabetes mellitus
     Route: 065
     Dates: start: 20120221
  3. GLIPIZIDE [Concomitant]
     Active Substance: GLIPIZIDE
     Dosage: 5 MILLIGRAM, QD (TAKE 1 TABLET EVERY DAY)
     Route: 048
     Dates: start: 20191006
  4. VITAMIN D [Concomitant]
     Active Substance: VITAMIN D NOS
     Indication: Vitamin D deficiency
     Dosage: UNK, QOD (EVERY OTHER DAY)
     Route: 065
     Dates: start: 2015
  5. COREG [Concomitant]
     Active Substance: CARVEDILOL
     Dosage: 6.25 MILLIGRAM, BID
     Route: 048
  6. CARDURA [Concomitant]
     Active Substance: DOXAZOSIN MESYLATE
     Dosage: 2 MILLIGRAM, QD (NIGHTLY MAX DAILY)
     Route: 048
  7. PROCARDIA [Concomitant]
     Active Substance: NIFEDIPINE
     Dosage: 60 MILLIGRAM, QD
     Route: 048
  8. GLUCOTROL [Concomitant]
     Active Substance: GLIPIZIDE
     Dosage: 5 MILLIGRAM, QD
     Route: 048
  9. PRAVACHOL [Concomitant]
     Active Substance: PRAVASTATIN SODIUM
     Dosage: 20 MILLIGRAM, QD
     Route: 048
  10. MICARDIS [Concomitant]
     Active Substance: TELMISARTAN
     Indication: Hypertension
     Dosage: 40 MILLIGRAM, QD
     Route: 048
  11. ELOCON [Concomitant]
     Active Substance: MOMETASONE FUROATE
     Indication: Pain
     Dosage: APPLY 2X PER DAY AS NEEDED
     Route: 065
  12. ELOCON [Concomitant]
     Active Substance: MOMETASONE FUROATE
     Indication: Pruritus
  13. VALIUM [Concomitant]
     Active Substance: DIAZEPAM
     Indication: Claustrophobia
     Route: 048
     Dates: start: 20181010
  14. AMLODIPINE\VALSARTAN [Concomitant]
     Active Substance: AMLODIPINE\VALSARTAN
     Route: 065
  15. KETOROLAC [Concomitant]
     Active Substance: KETOROLAC TROMETHAMINE
     Indication: Pain
     Dosage: 10 MILLIGRAM, Q8H (1 TAB(S) EVERY 8 HOURS X 5 DAYS, AS NEEDED)
     Route: 048
     Dates: start: 20191007
  16. COLACE [Concomitant]
     Active Substance: DOCUSATE SODIUM
     Dosage: 100 MILLIGRAM, BID (1 CAP(S) 2 TIMES A DAY X 14 DAYS)
     Route: 048
     Dates: start: 20191017

REACTIONS (1)
  - Prostate cancer [Recovered/Resolved]

NARRATIVE: CASE EVENT DATE: 20181001
